FAERS Safety Report 18886369 (Version 2)
Quarter: 2021Q1

REPORT INFORMATION
  Report Type: Spontaneous
  Country: JP (occurrence: JP)
  Receive Date: 20210212
  Receipt Date: 20210324
  Transmission Date: 20210420
  Serious: Yes (Other)
  Sender: FDA-Public Use
  Company Number: JP-PFIZER INC-2021140701

PATIENT
  Age: 73 Year
  Sex: Female

DRUGS (7)
  1. MEKTOVI [Suspect]
     Active Substance: BINIMETINIB
     Dosage: 30 MG
     Route: 048
     Dates: start: 20210216
  2. BRAFTOVI [Suspect]
     Active Substance: ENCORAFENIB
     Dosage: 225 MG
     Route: 048
     Dates: start: 20210216
  3. MEKTOVI [Suspect]
     Active Substance: BINIMETINIB
     Dosage: 30 MG
     Route: 048
     Dates: start: 20210126, end: 20210129
  4. MEKTOVI [Suspect]
     Active Substance: BINIMETINIB
     Indication: COLON CANCER
     Dosage: 45 MG
     Route: 048
     Dates: start: 20201222, end: 20210110
  5. TAKECAB [Concomitant]
     Active Substance: VONOPRAZAN FUMARATE
     Dosage: UNK
     Route: 065
  6. BRAFTOVI [Suspect]
     Active Substance: ENCORAFENIB
     Indication: COLON CANCER
     Dosage: 300 MG
     Route: 048
     Dates: start: 20201222, end: 20210110
  7. BRAFTOVI [Suspect]
     Active Substance: ENCORAFENIB
     Dosage: 225 MG
     Route: 048
     Dates: start: 20210126, end: 20210129

REACTIONS (4)
  - Serous retinal detachment [Recovered/Resolved]
  - Serous retinal detachment [Unknown]
  - Nausea [Recovered/Resolved]
  - Head discomfort [Recovered/Resolved]

NARRATIVE: CASE EVENT DATE: 20210105
